FAERS Safety Report 25427781 (Version 3)
Quarter: 2025Q3

REPORT INFORMATION
  Report Type: Report from Study
  Country: US (occurrence: US)
  Receive Date: 20250612
  Receipt Date: 20250909
  Transmission Date: 20251021
  Serious: Yes (Death, Other)
  Sender: GLAXOSMITHKLINE
  Company Number: US-GSK-US2025072665

PATIENT
  Sex: Female
  Weight: 71.655 kg

DRUGS (3)
  1. DOSTARLIMAB [Suspect]
     Active Substance: DOSTARLIMAB
     Indication: Mucinous endometrial carcinoma
  2. CARBOPLATIN [Concomitant]
     Active Substance: CARBOPLATIN
     Indication: Mucinous endometrial carcinoma
  3. PACLITAXEL [Concomitant]
     Active Substance: PACLITAXEL
     Indication: Mucinous endometrial carcinoma

REACTIONS (5)
  - Mucinous endometrial carcinoma [Fatal]
  - Malignant peritoneal neoplasm [Fatal]
  - Metastases to pleura [Fatal]
  - Metastases to bone [Fatal]
  - Condition aggravated [Fatal]
